FAERS Safety Report 4512513-2 (Version None)
Quarter: 2004Q4

REPORT INFORMATION
  Report Type: 
  Country: None (occurrence: None)
  Receive Date: 20041124
  Receipt Date: 20041105
  Transmission Date: 20050328
  Serious: Yes (Other)
  Sender: FDA-Public Use
  Company Number: USA041081777

PATIENT
  Age: 38 Year
  Sex: Male
  Weight: 99 kg

DRUGS (3)
  1. CIALIS [Suspect]
     Indication: ERECTILE DYSFUNCTION
     Dosage: 20 MG
  2. HUMALOG [Suspect]
     Indication: DIABETES MELLITUS
     Dates: start: 20040901
  3. LANTUS [Concomitant]

REACTIONS (3)
  - BLOOD GLUCOSE DECREASED [None]
  - CONVULSION [None]
  - MEDICATION ERROR [None]
